FAERS Safety Report 7014222 (Version 2)
Quarter: 2016Q3

REPORT INFORMATION
  Report Type: Spontaneous
  Country: US (occurrence: US)
  Receive Date: 20090608
  Receipt Date: 20160829
  Transmission Date: 20161109
  Serious: Yes (Death, Other)
  Sender: FDA-Public Use
  Company Number: US-PURDUE-USA-2009-0038431

PATIENT
  Age: 55 Year
  Sex: Male

DRUGS (2)
  1. NEURONTIN [Concomitant]
     Active Substance: GABAPENTIN
  2. OXYCONTIN [Suspect]
     Active Substance: OXYCODONE HYDROCHLORIDE
     Indication: PRODUCT USED FOR UNKNOWN INDICATION
     Dosage: 60 MG, DAILY

REACTIONS (13)
  - Completed suicide [Fatal]
  - Delusional disorder, unspecified type [Unknown]
  - Depression [Unknown]
  - Drug dependence [Unknown]
  - Obsessive-compulsive disorder [Unknown]
  - Drug abuse [Unknown]
  - Paranoia [Unknown]
  - Pain [Unknown]
  - Anxiety [Unknown]
  - Somnolence [Unknown]
  - Constipation [Unknown]
  - Overdose [Fatal]
  - Drug withdrawal syndrome [Unknown]

NARRATIVE: CASE EVENT DATE: 19990126
